FAERS Safety Report 24174845 (Version 1)
Quarter: 2024Q3

REPORT INFORMATION
  Report Type: Spontaneous
  Country: US (occurrence: US)
  Receive Date: 20240805
  Receipt Date: 20240805
  Transmission Date: 20241016
  Serious: No
  Sender: KARYOPHARM THERAPEUTICS
  Company Number: US-KARYOPHARM-2024KPT000952

PATIENT

DRUGS (20)
  1. XPOVIO [Suspect]
     Active Substance: SELINEXOR
     Indication: Plasma cell myeloma
     Dosage: 20 MG, WEEKLY
     Route: 048
     Dates: start: 20220916
  2. ACYCLOVIR [Concomitant]
     Active Substance: ACYCLOVIR
  3. DEXAMETHASONE [Concomitant]
     Active Substance: DEXAMETHASONE
  4. JANUVIA [Concomitant]
     Active Substance: SITAGLIPTIN PHOSPHATE
  5. ALLOPURINOL [Concomitant]
     Active Substance: ALLOPURINOL
  6. ELIQUIS [Concomitant]
     Active Substance: APIXABAN
  7. COLCHICINE [Concomitant]
     Active Substance: COLCHICINE
  8. SYNJARDY XR [Concomitant]
     Active Substance: EMPAGLIFLOZIN\METFORMIN HYDROCHLORIDE
  9. LUNESTA [Concomitant]
     Active Substance: ESZOPICLONE
  10. LASIX [Concomitant]
     Active Substance: FUROSEMIDE
  11. HYDROCHLOROTHIAZIDE [Concomitant]
     Active Substance: HYDROCHLOROTHIAZIDE
  12. LISINOPRIL [Concomitant]
     Active Substance: LISINOPRIL
  13. ATIVAN [Concomitant]
     Active Substance: LORAZEPAM
  14. LYRICA [Concomitant]
     Active Substance: PREGABALIN
  15. ZYPREXA [Concomitant]
     Active Substance: OLANZAPINE
  16. ZOFRAN [Concomitant]
     Active Substance: ONDANSETRON HYDROCHLORIDE
  17. METOPROLOL TARTRATE [Concomitant]
     Active Substance: METOPROLOL TARTRATE
  18. AMIODARONE [Concomitant]
     Active Substance: AMIODARONE
  19. TRAMADOL HCL [Concomitant]
     Active Substance: TRAMADOL HYDROCHLORIDE
  20. ACETAMINOPHEN\HYDROCODONE [Concomitant]
     Active Substance: ACETAMINOPHEN\HYDROCODONE

REACTIONS (3)
  - Swelling [Unknown]
  - Asthenia [Unknown]
  - Nausea [Unknown]

NARRATIVE: CASE EVENT DATE: 20240424
